FAERS Safety Report 10156701 (Version 1)
Quarter: 2014Q2

REPORT INFORMATION
  Report Type: Spontaneous
  Country: CA (occurrence: None)
  Receive Date: 20140505
  Receipt Date: 20140505
  Transmission Date: 20141212
  Serious: Yes (Other)
  Sender: FDA-Public Use
  Company Number: INT_00377_2014

PATIENT
  Age: 53 Year
  Sex: Male

DRUGS (2)
  1. CISPLATIN [Suspect]
     Indication: LUNG ADENOCARCINOMA
     Dosage: DAY 1 FOR MONTHLY CYCLES
     Route: 042
  2. VINORELBINE [Concomitant]

REACTIONS (1)
  - Aortic thrombosis [None]
